FAERS Safety Report 25380115 (Version 2)
Quarter: 2025Q2

REPORT INFORMATION
  Report Type: Spontaneous
  Country: EG (occurrence: EG)
  Receive Date: 20250530
  Receipt Date: 20250611
  Transmission Date: 20250717
  Serious: Yes (Other)
  Sender: AMERICAN REGENT
  Company Number: EG-AMERICAN REGENT INC-2025002217

PATIENT
  Sex: Female
  Weight: 70 kg

DRUGS (1)
  1. FERINJECT [Suspect]
     Active Substance: FERRIC CARBOXYMALTOSE
     Indication: Anaemia

REACTIONS (3)
  - Gastritis [Recovered/Resolved]
  - Groin pain [Recovered/Resolved]
  - Headache [Recovered/Resolved]
